FAERS Safety Report 7409890-1 (Version None)
Quarter: 2011Q2

REPORT INFORMATION
  Report Type: 
  Country: None (occurrence: None)
  Receive Date: 20110412
  Receipt Date: 20110407
  Transmission Date: 20111010
  Serious: Yes (Death, Hospitalization)
  Sender: FDA-Public Use
  Company Number: DE-ELI_LILLY_AND_COMPANY-DE201103005349

PATIENT
  Sex: Male

DRUGS (11)
  1. BYETTA [Suspect]
     Indication: TYPE 2 DIABETES MELLITUS
     Dosage: 5 UG, BID
     Route: 058
     Dates: start: 20090401, end: 20100620
  2. GLIMEPIRID [Concomitant]
     Indication: DIABETES MELLITUS
     Dosage: 4 MG, UNK
  3. CAPTOPRIL [Concomitant]
     Dosage: 50 MG, UNK
  4. METFORMIN HCL [Concomitant]
     Indication: DIABETES MELLITUS
     Dosage: 500 MG, UNK
     Dates: start: 20090429
  5. OLMETEC [Concomitant]
     Indication: HYPERTENSION
     Dosage: 20 MG, UNK
     Dates: start: 20100609
  6. CAPTOPRIL [Concomitant]
     Indication: HYPERTENSION
     Dosage: 25 MG, UNK
  7. CAPTOPRIL [Concomitant]
     Dosage: 50 MG, UNK
  8. METOPROLOL TARTRATE [Concomitant]
     Indication: HYPERTENSION
  9. ALDACTONE [Concomitant]
     Indication: OEDEMA
     Dosage: 50 MG, UNK
     Dates: start: 20090527
  10. GLIMEPIRID [Concomitant]
     Dosage: 3 MG, UNK
  11. HYDROCHLOROTHIAZIDE [Concomitant]
     Dosage: 25 MG, UNK

REACTIONS (10)
  - HYPERTENSION [None]
  - WEIGHT DECREASED [None]
  - CONFUSIONAL STATE [None]
  - PANCREATITIS NECROTISING [None]
  - ACQUIRED DIAPHRAGMATIC EVENTRATION [None]
  - FALL [None]
  - PULMONARY CONGESTION [None]
  - DYSPNOEA AT REST [None]
  - CHOLELITHIASIS [None]
  - RESTLESSNESS [None]
